FAERS Safety Report 9122026 (Version 1)
Quarter: 2013Q1

REPORT INFORMATION
  Report Type: Spontaneous
  Country: DE (occurrence: DE)
  Receive Date: 20130114
  Receipt Date: 20130114
  Transmission Date: 20140127
  Serious: Yes (Hospitalization, Other)
  Sender: FDA-Public Use
  Company Number: PHHY2012DE115428

PATIENT
  Age: 17 Year
  Sex: Male

DRUGS (4)
  1. LEPONEX [Suspect]
     Indication: SCHIZOPHRENIA
     Dosage: 12.5 MG, QD
     Route: 048
     Dates: start: 20121112
  2. LEPONEX [Suspect]
     Dosage: 100 MG, QD
     Route: 048
     Dates: start: 20121127
  3. LEPONEX [Suspect]
     Dosage: 50 MG, QD
     Route: 048
  4. TAVOR (LORAZEPAM) [Concomitant]

REACTIONS (4)
  - Prothrombin time prolonged [Recovering/Resolving]
  - Hepatic enzyme increased [Recovering/Resolving]
  - Nausea [Recovered/Resolved]
  - Vomiting [Recovered/Resolved]
